FAERS Safety Report 4885423-9 (Version None)
Quarter: 2006Q1

REPORT INFORMATION
  Report Type: 
  Country: None (occurrence: None)
  Receive Date: 20060119
  Receipt Date: 20060109
  Transmission Date: 20060701
  Serious: Yes (Hospitalization)
  Sender: FDA-Public Use
  Company Number: AU-ABBOTT-06P-008-0321743-00

PATIENT
  Sex: Male
  Weight: 40 kg

DRUGS (3)
  1. KLACID [Suspect]
     Indication: INFECTION PROPHYLAXIS
     Route: 048
     Dates: start: 20041015, end: 20050815
  2. RIFABUTIN [Suspect]
     Indication: INFECTION PROPHYLAXIS
     Route: 048
     Dates: start: 20041015, end: 20050815
  3. ETHAMBUTOL DIHYDROCHLORIDE [Suspect]
     Indication: INFECTION PROPHYLAXIS
     Route: 048
     Dates: start: 20041015, end: 20050815

REACTIONS (1)
  - PANCYTOPENIA [None]
